FAERS Safety Report 7119419-3 (Version None)
Quarter: 2010Q4

REPORT INFORMATION
  Report Type: 
  Country: None (occurrence: None)
  Receive Date: 20101123
  Receipt Date: 20101110
  Transmission Date: 20110411
  Serious: Yes (Hospitalization)
  Sender: FDA-Public Use
  Company Number: US-ACTELION-A-NJ2010-41651

PATIENT

DRUGS (12)
  1. TRACLEER [Suspect]
     Indication: PULMONARY ARTERIAL HYPERTENSION
     Dosage: 62.5 MG, BID
     Route: 048
     Dates: start: 20101006, end: 20101108
  2. TRACLEER [Suspect]
     Dosage: 62.5 MG, BID
     Route: 048
     Dates: start: 20101113
  3. COGENTIN [Concomitant]
  4. LOVENOX [Concomitant]
  5. COUMADIN [Concomitant]
  6. FOLIC ACID [Concomitant]
  7. KLONOPIN [Concomitant]
  8. OXYCODONE HCL [Concomitant]
  9. CARDIZEM [Concomitant]
  10. PROTONIX [Concomitant]
  11. REVATIO [Concomitant]
  12. OXYGEN [Concomitant]

REACTIONS (5)
  - ASPARTATE AMINOTRANSFERASE INCREASED [None]
  - BLOOD ALKALINE PHOSPHATASE INCREASED [None]
  - CONCOMITANT DISEASE AGGRAVATED [None]
  - HYPOXIA [None]
  - LIVER FUNCTION TEST ABNORMAL [None]
